FAERS Safety Report 8495794-2 (Version None)
Quarter: 2012Q2

REPORT INFORMATION
  Report Type: 
  Country: None (occurrence: None)
  Receive Date: 20120629
  Receipt Date: 20120619
  Transmission Date: 20120825
  Serious: Yes (Disabling, Other)
  Sender: FDA-Public Use
  Company Number: 2012P1042628

PATIENT
  Age: 89 Year
  Sex: Female
  Weight: 50.3493 kg

DRUGS (6)
  1. ASPIRIN [Concomitant]
  2. PREDNISONE [Suspect]
     Indication: CHRONIC OBSTRUCTIVE PULMONARY DISEASE
     Dosage: 10 MG;QD;PO, 5 MG;QD;PO
     Route: 048
     Dates: start: 20120617
  3. PREDNISONE [Suspect]
     Indication: CHRONIC OBSTRUCTIVE PULMONARY DISEASE
     Dosage: 10 MG;QD;PO, 5 MG;QD;PO
     Route: 048
     Dates: end: 20120616
  4. SYNTHROID [Concomitant]
  5. ADVAIR DISKUS 100/50 [Concomitant]
  6. DENURA (ALBUTEROL  NEBULIZER) [Concomitant]

REACTIONS (8)
  - NAUSEA [None]
  - PSYCHOMOTOR HYPERACTIVITY [None]
  - TREMOR [None]
  - VISUAL IMPAIRMENT [None]
  - HEADACHE [None]
  - INSOMNIA [None]
  - PRURITUS [None]
  - PRODUCT QUALITY ISSUE [None]
